FAERS Safety Report 17688873 (Version 1)
Quarter: 2020Q2

REPORT INFORMATION
  Report Type: Spontaneous
  Country: CA (occurrence: CA)
  Receive Date: 20200421
  Receipt Date: 20200421
  Transmission Date: 20200714
  Serious: Yes (Congenital Anomaly)
  Sender: FDA-Public Use
  Company Number: CA-ROCHE-2584859

PATIENT
  Age: 1 Month
  Sex: Female
  Weight: 3 kg

DRUGS (1)
  1. CELLCEPT [Suspect]
     Active Substance: MYCOPHENOLATE MOFETIL\MYCOPHENOLATE MOFETIL HYDROCHLORIDE
     Indication: SYSTEMIC LUPUS ERYTHEMATOSUS
     Route: 064

REACTIONS (5)
  - Foetal exposure during pregnancy [Unknown]
  - Coloboma [Unknown]
  - Dysmorphism [Unknown]
  - Congenital intestinal malformation [Unknown]
  - Hypertelorism of orbit [Unknown]
